FAERS Safety Report 11303050 (Version 1)
Quarter: 2015Q3

REPORT INFORMATION
  Report Type: Spontaneous
  Country: US (occurrence: US)
  Receive Date: 20150723
  Receipt Date: 20150723
  Transmission Date: 20151125
  Serious: Yes (Hospitalization, Other)
  Sender: FDA-Public Use
  Company Number: US-SHIRE-US201508027

PATIENT
  Age: 17 Year
  Sex: Female
  Weight: 57.2 kg

DRUGS (1)
  1. LIALDA [Suspect]
     Active Substance: MESALAMINE
     Indication: COLITIS ULCERATIVE
     Dosage: 3.6 G, UNKNOWN
     Route: 048
     Dates: end: 20150705

REACTIONS (3)
  - Drug administered to patient of inappropriate age [Recovered/Resolved]
  - Pericardial effusion [Not Recovered/Not Resolved]
  - Congestive cardiomyopathy [Not Recovered/Not Resolved]
